FAERS Safety Report 12804814 (Version 1)
Quarter: 2016Q4

REPORT INFORMATION
  Report Type: Spontaneous
  Country: DE (occurrence: DE)
  Receive Date: 20161003
  Receipt Date: 20161003
  Transmission Date: 20170207
  Serious: Yes (Hospitalization, Other)
  Sender: FDA-Public Use
  Company Number: DE-ELI_LILLY_AND_COMPANY-DE201608013586

PATIENT
  Age: 89 Year
  Sex: Female

DRUGS (1)
  1. HUMALOG [Suspect]
     Active Substance: INSULIN LISPRO
     Indication: PRODUCT USED FOR UNKNOWN INDICATION
     Dosage: UNK, UNKNOWN
     Route: 065

REACTIONS (20)
  - Hypoacusis [Unknown]
  - Diarrhoea [Unknown]
  - Hypokinesia [Unknown]
  - Thinking abnormal [Unknown]
  - Cataract [Unknown]
  - Gait disturbance [Unknown]
  - Fall [Unknown]
  - Retinal injury [Unknown]
  - Renal cancer [Unknown]
  - Pain in extremity [Unknown]
  - Blood glucose decreased [Unknown]
  - Brain injury [Unknown]
  - Weight decreased [Unknown]
  - Vomiting [Unknown]
  - Constipation [Unknown]
  - Memory impairment [Unknown]
  - Visual impairment [Unknown]
  - Decubitus ulcer [Recovering/Resolving]
  - Cerebral disorder [Unknown]
  - Feeling abnormal [Unknown]

NARRATIVE: CASE EVENT DATE: 201603
